FAERS Safety Report 25393572 (Version 1)
Quarter: 2025Q2

REPORT INFORMATION
  Report Type: Spontaneous
  Country: CN (occurrence: CN)
  Receive Date: 20250604
  Receipt Date: 20250604
  Transmission Date: 20250716
  Serious: Yes (Hospitalization, Other)
  Sender: STRIDES
  Company Number: CN-STRIDES ARCOLAB LIMITED-2025SP006779

PATIENT
  Age: 53 Year
  Sex: Female

DRUGS (26)
  1. DOXEPIN HYDROCHLORIDE [Suspect]
     Active Substance: DOXEPIN HYDROCHLORIDE
     Indication: Anxiety
     Route: 048
  2. GABAPENTIN [Suspect]
     Active Substance: GABAPENTIN
     Indication: Cancer pain
     Route: 065
  3. GABAPENTIN [Suspect]
     Active Substance: GABAPENTIN
     Route: 065
  4. MORPHINE SULFATE [Suspect]
     Active Substance: MORPHINE SULFATE
     Indication: Cancer pain
     Route: 065
  5. CELECOXIB [Suspect]
     Active Substance: CELECOXIB
     Indication: Cancer pain
     Route: 065
  6. CELECOXIB [Suspect]
     Active Substance: CELECOXIB
     Route: 065
  7. HYDROCODONE [Suspect]
     Active Substance: HYDROCODONE
     Indication: Cancer pain
     Route: 048
  8. SUFENTANIL [Suspect]
     Active Substance: SUFENTANIL
     Indication: Cancer pain
     Route: 042
  9. SUFENTANIL [Suspect]
     Active Substance: SUFENTANIL
     Route: 042
  10. SUFENTANIL [Suspect]
     Active Substance: SUFENTANIL
     Route: 042
  11. SUFENTANIL [Suspect]
     Active Substance: SUFENTANIL
     Route: 042
  12. SUFENTANIL [Suspect]
     Active Substance: SUFENTANIL
     Route: 042
  13. SUFENTANIL [Suspect]
     Active Substance: SUFENTANIL
     Route: 042
  14. SUFENTANIL [Suspect]
     Active Substance: SUFENTANIL
     Route: 042
  15. SUFENTANIL [Suspect]
     Active Substance: SUFENTANIL
     Route: 042
  16. SUFENTANIL [Suspect]
     Active Substance: SUFENTANIL
     Route: 042
  17. SUFENTANIL [Suspect]
     Active Substance: SUFENTANIL
     Route: 042
  18. DEXMEDETOMIDINE [Suspect]
     Active Substance: DEXMEDETOMIDINE
     Indication: Cancer pain
     Route: 065
  19. DEXMEDETOMIDINE [Suspect]
     Active Substance: DEXMEDETOMIDINE
     Route: 065
  20. DOCETAXEL [Concomitant]
     Active Substance: DOCETAXEL
     Indication: Metastatic gastric cancer
     Route: 041
  21. DOCETAXEL [Concomitant]
     Active Substance: DOCETAXEL
     Route: 065
  22. OXALIPLATIN [Concomitant]
     Active Substance: OXALIPLATIN
     Indication: Metastatic gastric cancer
     Route: 041
  23. OXALIPLATIN [Concomitant]
     Active Substance: OXALIPLATIN
     Route: 065
  24. FLUOROURACIL [Concomitant]
     Active Substance: FLUOROURACIL
     Indication: Metastatic gastric cancer
     Route: 065
  25. FLUOROURACIL [Concomitant]
     Active Substance: FLUOROURACIL
     Route: 065
  26. ZOLEDRONIC ACID [Concomitant]
     Active Substance: ZOLEDRONIC ACID
     Indication: Metastases to bone
     Route: 065

REACTIONS (4)
  - Serotonin syndrome [Recovering/Resolving]
  - Constipation [Recovering/Resolving]
  - Drug ineffective [Unknown]
  - Off label use [Unknown]
